FAERS Safety Report 17799704 (Version 1)
Quarter: 2020Q2

REPORT INFORMATION
  Report Type: Report from Study
  Country: US (occurrence: US)
  Receive Date: 20200518
  Receipt Date: 20200518
  Transmission Date: 20200714
  Serious: No
  Sender: FDA-Public Use
  Company Number: NVSC2020US133272

PATIENT
  Sex: Female

DRUGS (1)
  1. COSENTYX [Suspect]
     Active Substance: SECUKINUMAB
     Indication: PSORIASIS
     Dosage: 150 MG, QW
     Route: 058
     Dates: start: 20200511

REACTIONS (8)
  - Blood pressure increased [Unknown]
  - Anxiety [Unknown]
  - Diarrhoea [Unknown]
  - Migraine [Unknown]
  - Chills [Unknown]
  - Abdominal pain upper [Unknown]
  - Malaise [Unknown]
  - Feeling abnormal [Unknown]
